FAERS Safety Report 9222137 (Version 1)
Quarter: 2013Q1

REPORT INFORMATION
  Report Type: Spontaneous
  Country: US (occurrence: None)
  Receive Date: 20120907
  Receipt Date: 20120907
  Transmission Date: 20140127
  Serious: No
  Sender: FDA-Public Use
  Company Number: TH-2012-00539

PATIENT
  Sex: Female

DRUGS (2)
  1. EGRIFTA [Suspect]
     Indication: LIPODYSTROPHY ACQUIRED
     Route: 058
     Dates: start: 20120711
  2. ZIAC (HYDROCHLOROTHIAZIDE, BISOPROLOL FUMARATE) [Concomitant]

REACTIONS (2)
  - Headache [None]
  - Arthralgia [None]
